FAERS Safety Report 9157612 (Version 2)
Quarter: 2013Q1

REPORT INFORMATION
  Report Type: Spontaneous
  Country: BR (occurrence: BR)
  Receive Date: 20130312
  Receipt Date: 20130319
  Transmission Date: 20140127
  Serious: Yes (Death, Other)
  Sender: FDA-Public Use
  Company Number: BR-PFIZER INC-2012071949

PATIENT
  Age: 38 Year
  Sex: Female
  Weight: 49 kg

DRUGS (5)
  1. SUTENT [Suspect]
     Indication: METASTATIC RENAL CELL CARCINOMA
     Dosage: 50 MG, 4 WEEKS ON AND 2 OFF
     Route: 048
     Dates: start: 20120227
  2. TRAMAL [Concomitant]
     Dosage: UNK, EVERY 4 HOURS
  3. DIPYRONE [Concomitant]
     Dosage: UNK, EVERY 4 HOURS
  4. MORPHINE [Concomitant]
     Dosage: UNK, EVERY 12 HOURS
  5. TYLEX [Concomitant]
     Dosage: UNK

REACTIONS (9)
  - Death [Fatal]
  - Feeding disorder [Not Recovered/Not Resolved]
  - Disease progression [Unknown]
  - Metastatic renal cell carcinoma [Unknown]
  - Glossodynia [Unknown]
  - Pain in extremity [Not Recovered/Not Resolved]
  - Pelvic pain [Not Recovered/Not Resolved]
  - Swelling [Not Recovered/Not Resolved]
  - Yellow skin [Not Recovered/Not Resolved]
